FAERS Safety Report 10048533 (Version 1)
Quarter: 2014Q1

REPORT INFORMATION
  Report Type: Spontaneous
  Country: US (occurrence: US)
  Receive Date: 20140331
  Receipt Date: 20140331
  Transmission Date: 20141002
  Serious: Yes (Hospitalization)
  Sender: FDA-Public Use
  Company Number: PHEH2014US006181

PATIENT
  Age: 34 Year
  Sex: Male

DRUGS (2)
  1. CLOZARIL [Suspect]
     Dosage: 400 MG, UNK
     Dates: end: 20140320
  2. CLOZARIL [Suspect]
     Dosage: 50 MG, UNK
     Dates: start: 20140325

REACTIONS (8)
  - Colitis [Unknown]
  - Diarrhoea [Unknown]
  - Vomiting [Unknown]
  - Nausea [Unknown]
  - Sepsis [Unknown]
  - White blood cell count increased [Unknown]
  - Pneumonia [Unknown]
  - Neutrophil count increased [Unknown]
